FAERS Safety Report 20551334 (Version 3)
Quarter: 2022Q2

REPORT INFORMATION
  Report Type: Spontaneous
  Country: CA (occurrence: CA)
  Receive Date: 20220304
  Receipt Date: 20220601
  Transmission Date: 20220720
  Serious: Yes (Other)
  Sender: FDA-Public Use
  Company Number: CA-AUROBINDO-AUR-APL-2022-006295

PATIENT
  Age: 26 Year
  Sex: Female
  Weight: 58 kg

DRUGS (5)
  1. LIDOCAINE [Suspect]
     Active Substance: LIDOCAINE
     Indication: Local anaesthesia
     Dosage: 400 MILLIGRAM(20 ML)
     Route: 065
  2. LIDOCAINE [Suspect]
     Active Substance: LIDOCAINE
     Dosage: 10 MILLILITER
     Route: 065
  3. LIDOCAINE [Suspect]
     Active Substance: LIDOCAINE
     Dosage: 4 MILLILITER, BOLUSES
     Route: 065
  4. EPINEPHRINE [Suspect]
     Active Substance: EPINEPHRINE
     Indication: Local anaesthesia
     Dosage: UNK
     Route: 008
  5. EPINEPHRINE [Concomitant]
     Active Substance: EPINEPHRINE
     Indication: Product used for unknown indication
     Dosage: UNK
     Route: 065

REACTIONS (5)
  - Consciousness fluctuating [Unknown]
  - Local anaesthetic systemic toxicity [Recovered/Resolved]
  - Maternal exposure during delivery [Unknown]
  - Hypoaesthesia oral [Unknown]
  - Tinnitus [Unknown]
